FAERS Safety Report 23848589 (Version 1)
Quarter: 2024Q2

REPORT INFORMATION
  Report Type: Spontaneous
  Country: US (occurrence: None)
  Receive Date: 20240511
  Receipt Date: 20240511
  Transmission Date: 20240716
  Serious: No
  Sender: FDA-Public Use
  Company Number: None

PATIENT
  Sex: Female

DRUGS (6)
  1. GILENYA [Suspect]
     Active Substance: FINGOLIMOD HYDROCHLORIDE
     Indication: Multiple sclerosis
     Dosage: OTHER QUANTITY : TAKE 1 CAPSULE;?FREQUENCY : DAILY;?
     Route: 048
     Dates: start: 20240127
  2. AMLODIPINE [Concomitant]
     Active Substance: AMLODIPINE BESYLATE
  3. FINGOLIMOD [Concomitant]
     Active Substance: FINGOLIMOD
  4. KP VITAMIN D [Concomitant]
  5. MYRBETRIQ [Concomitant]
     Active Substance: MIRABEGRON
  6. SUPER OMEGA [Concomitant]

REACTIONS (6)
  - Musculoskeletal stiffness [None]
  - Muscle spasticity [None]
  - Bladder disorder [None]
  - Mobility decreased [None]
  - Fall [None]
  - Fatigue [None]
